FAERS Safety Report 5621345-3 (Version None)
Quarter: 2008Q1

REPORT INFORMATION
  Report Type: 
  Country: None (occurrence: None)
  Receive Date: 20080211
  Receipt Date: 20080201
  Transmission Date: 20080703
  Serious: No
  Sender: FDA-Public Use
  Company Number: US-BAYER-200812937NA

PATIENT
  Age: 24 Year
  Sex: Female
  Weight: 129 kg

DRUGS (3)
  1. MIRENA [Suspect]
     Indication: CONTRACEPTION
     Route: 015
     Dates: start: 20070302
  2. PRENATAL VITAMINS [Concomitant]
     Indication: DRUG USE FOR UNKNOWN INDICATION
  3. NOVARING [Concomitant]
     Indication: DRUG USE FOR UNKNOWN INDICATION
     Dates: start: 20041201

REACTIONS (5)
  - COMPLICATION OF DEVICE INSERTION [None]
  - FATIGUE [None]
  - METRORRHAGIA [None]
  - NAUSEA [None]
  - PREGNANCY WITH CONTRACEPTIVE DEVICE [None]
